FAERS Safety Report 16439163 (Version 1)
Quarter: 2019Q2

REPORT INFORMATION
  Report Type: Report from Study
  Country: CN (occurrence: CN)
  Receive Date: 20190617
  Receipt Date: 20190617
  Transmission Date: 20190711
  Serious: Yes (Other)
  Sender: FDA-Public Use
  Company Number: CN-ROCHE-2333530

PATIENT

DRUGS (2)
  1. IRINOTECAN [Suspect]
     Active Substance: IRINOTECAN
     Indication: GASTROINTESTINAL CANCER METASTATIC
     Dosage: ON DAY 1, 21 DAYS AS ONE CYCLE
     Route: 042
  2. CAPECITABINE. [Suspect]
     Active Substance: CAPECITABINE
     Indication: GASTROINTESTINAL CANCER METASTATIC
     Dosage: FOR 14 DAYS, 21 DAYS AS ONE CYCLE
     Route: 048

REACTIONS (7)
  - Vomiting [Unknown]
  - Diarrhoea [Unknown]
  - Palmar-plantar erythrodysaesthesia syndrome [Unknown]
  - Liver injury [Unknown]
  - Asthenia [Unknown]
  - Nausea [Unknown]
  - Granulocyte count decreased [Unknown]
